FAERS Safety Report 4846118-0 (Version None)
Quarter: 2005Q4

REPORT INFORMATION
  Report Type: 
  Country: None (occurrence: None)
  Receive Date: 20051201
  Receipt Date: 20051117
  Transmission Date: 20060501
  Serious: Yes (Hospitalization, Other)
  Sender: FDA-Public Use
  Company Number: HQWYE640018NOV05

PATIENT
  Age: 17 Year
  Sex: Female
  Weight: 80.2 kg

DRUGS (10)
  1. RAPAMUNE [Suspect]
     Indication: PROPHYLAXIS AGAINST TRANSPLANT REJECTION
     Dosage: 5 MG 1X PER 1 DAY, ORAL; 6 MG 1X PER 1 DAY, ORAL; 5 MG 1X PER 1 DAY, ORAL
     Route: 048
     Dates: start: 20051004, end: 20051115
  2. RAPAMUNE [Suspect]
     Indication: PROPHYLAXIS AGAINST TRANSPLANT REJECTION
     Dosage: 5 MG 1X PER 1 DAY, ORAL; 6 MG 1X PER 1 DAY, ORAL; 5 MG 1X PER 1 DAY, ORAL
     Route: 048
     Dates: start: 20051116, end: 20051116
  3. RAPAMUNE [Suspect]
     Indication: PROPHYLAXIS AGAINST TRANSPLANT REJECTION
     Dosage: 5 MG 1X PER 1 DAY, ORAL; 6 MG 1X PER 1 DAY, ORAL; 5 MG 1X PER 1 DAY, ORAL
     Route: 048
     Dates: start: 20051117
  4. MYCOPHENOLATE MOFETIL (MYCHOPHENOLATE MOFETIL) [Suspect]
     Indication: PROPHYLAXIS AGAINST TRANSPLANT REJECTION
     Dosage: 500 MG 2X PER 1 DAY,
     Dates: end: 20051101
  5. MYCOPHENOLATE MOFETIL (MYCHOPHENOLATE MOFETIL) [Suspect]
     Indication: PROPHYLAXIS AGAINST TRANSPLANT REJECTION
     Dosage: 500 MG 2X PER 1 DAY,
     Dates: start: 20051101
  6. PREDNISONE [Suspect]
     Indication: PROPHYLAXIS AGAINST TRANSPLANT REJECTION
  7. THYMOGLOBULIN [Suspect]
     Indication: PROPHYLAXIS AGAINST TRANSPLANT REJECTION
     Dates: start: 20051117, end: 20021121
  8. THYMOGLOBULIN [Suspect]
     Indication: PROPHYLAXIS AGAINST TRANSPLANT REJECTION
     Dates: start: 20051123
  9. UNSPECIFIED THYROID MEDICATION (UNSPECIFIED THYROID MEDICATION) [Concomitant]
  10. LASIX [Concomitant]

REACTIONS (4)
  - IMMUNOSUPPRESSANT DRUG LEVEL DECREASED [None]
  - KIDNEY TRANSPLANT REJECTION [None]
  - LEUKOPENIA [None]
  - WEIGHT INCREASED [None]
